FAERS Safety Report 24353087 (Version 1)
Quarter: 2024Q3

REPORT INFORMATION
  Report Type: Spontaneous
  Country: US (occurrence: None)
  Receive Date: 20240922
  Receipt Date: 20240922
  Transmission Date: 20241016
  Serious: Yes (Life-Threatening, Hospitalization)
  Sender: Public
  Company Number: None

PATIENT
  Age: 57 Year
  Sex: Female
  Weight: 71.4 kg

DRUGS (1)
  1. TENECTEPLASE [Suspect]
     Active Substance: TENECTEPLASE
     Indication: Cerebrovascular accident
     Dosage: 17 MG ONCE INTRAVENOUS BOLUS ?
     Route: 040
     Dates: start: 20240913, end: 20240913

REACTIONS (1)
  - Angioedema [None]

NARRATIVE: CASE EVENT DATE: 20240913
